FAERS Safety Report 9867003 (Version 1)
Quarter: 2014Q1

REPORT INFORMATION
  Report Type: Spontaneous
  Country: US (occurrence: None)
  Receive Date: 20140203
  Receipt Date: 20140203
  Transmission Date: 20141002
  Serious: Yes (Other)
  Sender: FDA-Public Use
  Company Number: None

PATIENT
  Age: 52 Year
  Sex: Female

DRUGS (1)
  1. ENBREL 50 MG/ML AMGEN [Suspect]
     Indication: PSORIASIS
     Dosage: 50 ML?1 INJECTION 2X WEE?INTO THE MUSCLE

REACTIONS (4)
  - Eye pain [None]
  - Photophobia [None]
  - Blindness transient [None]
  - Neuralgia [None]
